FAERS Safety Report 17469805 (Version 1)
Quarter: 2020Q1

REPORT INFORMATION
  Report Type: Spontaneous
  Country: US (occurrence: US)
  Receive Date: 20200227
  Receipt Date: 20200227
  Transmission Date: 20200409
  Serious: No
  Sender: FDA-Public Use
  Company Number: US-OXFORD PHARMACEUTICALS, LLC-2019OXF00031

PATIENT
  Sex: Female
  Weight: 89.8 kg

DRUGS (5)
  1. CYCLOBENZAPRINE. [Suspect]
     Active Substance: CYCLOBENZAPRINE
     Dosage: 10 MG, 3X/DAY
  2. DULOXETINE HYDROCHLORIDE. [Concomitant]
     Active Substance: DULOXETINE HYDROCHLORIDE
     Dosage: 60 MG, 1X/DAY IN THE MORNING
     Dates: start: 2015
  3. NAPROXEN. [Concomitant]
     Active Substance: NAPROXEN
     Dosage: 500 MG, 2X/DAY IN THE MORNING AND IN THE EVENING
     Dates: start: 20180705
  4. METHOCARBAMOL. [Suspect]
     Active Substance: METHOCARBAMOL
     Indication: MUSCLE RELAXANT THERAPY
     Dosage: 500 MG, 4X/DAY
     Dates: start: 201807
  5. AMITRIPTYLINE HCL [Suspect]
     Active Substance: AMITRIPTYLINE
     Dosage: 10 MG, 1X/DAY BEFORE BED
     Dates: start: 201807

REACTIONS (1)
  - Drug ineffective [Unknown]
